FAERS Safety Report 19082531 (Version 3)
Quarter: 2022Q1

REPORT INFORMATION
  Report Type: Spontaneous
  Country: CH (occurrence: CH)
  Receive Date: 20210401
  Receipt Date: 20220207
  Transmission Date: 20220423
  Serious: Yes (Hospitalization)
  Sender: FDA-Public Use
  Company Number: CH-VERTEX PHARMACEUTICALS-2021-005143

PATIENT
  Sex: Male

DRUGS (2)
  1. TRIKAFTA [Suspect]
     Active Substance: ELEXACAFTOR\IVACAFTOR\TEZACAFTOR
     Indication: Cystic fibrosis
     Dosage: UNKNOWN FREQ
     Route: 048
     Dates: start: 20201224, end: 20210205
  2. TRIKAFTA [Suspect]
     Active Substance: ELEXACAFTOR\IVACAFTOR\TEZACAFTOR
     Dosage: REDUCED DOSE; 1 TAB AM ALTERNATING WITH 2 TABS AM
     Route: 048
     Dates: start: 2021

REACTIONS (10)
  - Aspartate aminotransferase increased [Recovered/Resolved]
  - Alanine aminotransferase increased [Recovered/Resolved]
  - Abdominal pain [Unknown]
  - Obliterative bronchiolitis [Unknown]
  - General physical health deterioration [Unknown]
  - Weight decreased [Unknown]
  - Haemoglobin decreased [Unknown]
  - Constipation [Unknown]
  - Gamma-glutamyltransferase increased [Recovered/Resolved]
  - C-reactive protein increased [Unknown]

NARRATIVE: CASE EVENT DATE: 20210101
